FAERS Safety Report 19104310 (Version 1)
Quarter: 2021Q2

REPORT INFORMATION
  Report Type: Other
  Country: IT (occurrence: IT)
  Receive Date: 20210407
  Receipt Date: 20210407
  Transmission Date: 20210717
  Serious: Yes (Other)
  Sender: FDA-Public Use
  Company Number: IT-VALIDUS PHARMACEUTICALS LLC-IT-2021VAL000421

PATIENT
  Age: 57 Year
  Sex: Female

DRUGS (2)
  1. LASIX [Suspect]
     Active Substance: FUROSEMIDE
     Indication: HYPERTENSION
     Dosage: 1 DF, UNK
     Route: 048
     Dates: start: 20170727
  2. SPIRONOLACTONE. [Suspect]
     Active Substance: SPIRONOLACTONE
     Indication: HYPERTENSION
     Dosage: 100 MG, QD
     Route: 048
     Dates: start: 20180614

REACTIONS (7)
  - Asthenia [Recovering/Resolving]
  - Thrombocytopenia [Recovering/Resolving]
  - Hypotension [Recovering/Resolving]
  - Hypokalaemia [Recovering/Resolving]
  - Prothrombin time shortened [Recovering/Resolving]
  - Malaise [Recovering/Resolving]
  - Blood creatine phosphokinase decreased [Recovering/Resolving]

NARRATIVE: CASE EVENT DATE: 20180720
